FAERS Safety Report 5399665-X (Version None)
Quarter: 2007Q3

REPORT INFORMATION
  Report Type: 
  Country: None (occurrence: None)
  Receive Date: 20070727
  Receipt Date: 20070715
  Transmission Date: 20080115
  Serious: Yes (Other)
  Sender: FDA-Public Use
  Company Number: US-PFIZER INC-2007058010

PATIENT
  Sex: Female
  Weight: 72 kg

DRUGS (14)
  1. LYRICA [Suspect]
     Indication: DIABETIC NEUROPATHY
  2. NEURONTIN [Suspect]
     Indication: MIGRAINE
  3. CHOLESTEROL- AND TRIGLYCERIDE REDUCERS [Suspect]
     Indication: BLOOD CHOLESTEROL
  4. CORTICOSTEROIDS [Suspect]
  5. TOPAMAX [Suspect]
     Indication: MIGRAINE
  6. VAGIFEM [Suspect]
     Route: 067
  7. PROPRANOLOL [Concomitant]
     Indication: MIGRAINE
  8. HYDROCHLOROTHIAZIDE [Concomitant]
     Indication: BLOOD PRESSURE
  9. DETROL LA [Concomitant]
  10. NAPROXEN [Concomitant]
     Indication: NECK PAIN
  11. FIORINAL W/CODEINE [Concomitant]
     Indication: MIGRAINE
  12. FIORINAL [Concomitant]
     Indication: MIGRAINE
  13. VALIUM [Concomitant]
     Indication: MIGRAINE
  14. ALL OTHER THERAPEUTIC PRODUCTS [Concomitant]
     Indication: HORMONE THERAPY

REACTIONS (15)
  - AGITATION [None]
  - DIZZINESS [None]
  - FEELING DRUNK [None]
  - GLUCOSE TOLERANCE IMPAIRED [None]
  - ILL-DEFINED DISORDER [None]
  - INSOMNIA [None]
  - LETHARGY [None]
  - MIDDLE INSOMNIA [None]
  - MIGRAINE [None]
  - MUSCLE SPASMS [None]
  - NAUSEA [None]
  - NEUROPATHY [None]
  - PAIN [None]
  - SOMNOLENCE [None]
  - SURGERY [None]
